FAERS Safety Report 21101707 (Version 2)
Quarter: 2022Q3

REPORT INFORMATION
  Report Type: Report from Study
  Country: US (occurrence: US)
  Receive Date: 20220719
  Receipt Date: 20220822
  Transmission Date: 20221026
  Serious: Yes (Hospitalization, Other)
  Sender: FDA-Public Use
  Company Number: US-UCBSA-2022016604

PATIENT
  Sex: Female

DRUGS (1)
  1. CERTOLIZUMAB PEGOL [Suspect]
     Active Substance: CERTOLIZUMAB PEGOL
     Indication: Psoriatic arthropathy
     Dosage: 200 MILLIGRAM, EV 2 WEEKS(QOW)
     Dates: start: 20210912, end: 202206

REACTIONS (8)
  - Depression [Recovering/Resolving]
  - Physical disability [Recovering/Resolving]
  - Psoriatic arthropathy [Not Recovered/Not Resolved]
  - Hospitalisation [Unknown]
  - Memory impairment [Recovering/Resolving]
  - Visual impairment [Recovering/Resolving]
  - Infection [Recovering/Resolving]
  - Needle issue [Unknown]

NARRATIVE: CASE EVENT DATE: 20220101
